FAERS Safety Report 16051029 (Version 1)
Quarter: 2019Q1

REPORT INFORMATION
  Report Type: Report from Study
  Country: GB (occurrence: GB)
  Receive Date: 20190308
  Receipt Date: 20190308
  Transmission Date: 20190418
  Serious: Yes (Death)
  Sender: FDA-Public Use
  Company Number: GB-ROCHE-2279250

PATIENT

DRUGS (4)
  1. CAPECITABINE. [Suspect]
     Active Substance: CAPECITABINE
     Indication: BREAST CANCER
  2. CAPECITABINE. [Suspect]
     Active Substance: CAPECITABINE
     Indication: BREAST CANCER METASTATIC
     Dosage: DAYS 1-14 OF A 21-DAY CYCLE
     Route: 048
  3. ERIBULIN MESILATE [Suspect]
     Active Substance: ERIBULIN
     Indication: BREAST CANCER METASTATIC
     Dosage: DOSE: 1.2, 1.6 OR 2.0 MG/M2:  ON DAY 1 OF A 21-DAY CYCLE
     Route: 042
  4. ERIBULIN MESILATE [Suspect]
     Active Substance: ERIBULIN
     Indication: BREAST CANCER
     Dosage: DOSE: 0.7, 1.1 OR 1.4 MG/M2: DAY 1 AND 8 IN 21 DAY CYCLE
     Route: 042

REACTIONS (1)
  - Pulmonary embolism [Fatal]
